FAERS Safety Report 8564602-3 (Version None)
Quarter: 2012Q3

REPORT INFORMATION
  Report Type: 
  Country: None (occurrence: None)
  Receive Date: 20120803
  Receipt Date: 20120727
  Transmission Date: 20120928
  Serious: Yes (Other)
  Sender: FDA-Public Use
  Company Number: FR-PFIZER INC-2012185492

PATIENT
  Age: 49 Year
  Sex: Female
  Weight: 59 kg

DRUGS (4)
  1. NEORAL [Concomitant]
     Indication: BONE MARROW FAILURE
     Dosage: 150 MG, 2X/DAY
     Route: 048
     Dates: start: 20120509
  2. NEORAL [Concomitant]
     Dosage: 100 MG, 2X/DAY
     Route: 048
     Dates: start: 20120111
  3. ATGAM [Suspect]
     Indication: BONE MARROW FAILURE
     Dosage: 2160 MG, 1X/DAY
     Route: 042
     Dates: start: 20120510, end: 20120512
  4. PREDNISOLONE [Concomitant]
     Indication: ANAEMIA HAEMOLYTIC AUTOIMMUNE
     Dosage: 30 MG, 2X/DAY
     Route: 042
     Dates: start: 20120509

REACTIONS (1)
  - CYTOLYTIC HEPATITIS [None]
